FAERS Safety Report 8533373-9 (Version None)
Quarter: 2012Q3

REPORT INFORMATION
  Report Type: 
  Country: None (occurrence: None)
  Receive Date: 20120724
  Receipt Date: 20120718
  Transmission Date: 20120928
  Serious: Yes (Hospitalization)
  Sender: FDA-Public Use
  Company Number: PHEH2012US013005

PATIENT
  Sex: Male

DRUGS (1)
  1. TASIGNA [Suspect]
     Indication: CHRONIC MYELOID LEUKAEMIA
     Dosage: 300 MG, BID
     Route: 048
     Dates: start: 20120508

REACTIONS (6)
  - VERTIGO [None]
  - SWELLING [None]
  - CELLULITIS [None]
  - VOMITING [None]
  - PULMONARY CONGESTION [None]
  - NAUSEA [None]
